FAERS Safety Report 8359506-5 (Version None)
Quarter: 2012Q2

REPORT INFORMATION
  Report Type: 
  Country: None (occurrence: None)
  Receive Date: 20120515
  Receipt Date: 20120507
  Transmission Date: 20120825
  Serious: Yes (Hospitalization)
  Sender: FDA-Public Use
  Company Number: US-BAYER-2012-006922

PATIENT
  Age: 17 Year
  Sex: Female
  Weight: 65.76 kg

DRUGS (9)
  1. IBUPROFEN [Concomitant]
     Dosage: 800 MG, UNK
     Dates: start: 20090110
  2. YAZ [Suspect]
     Indication: PREMENSTRUAL SYNDROME
  3. CLINDAMYCIN HCL [Concomitant]
     Dosage: 300 MG, UNK
     Dates: start: 20090219
  4. NAPROXEN [Concomitant]
     Dosage: 500 MG, UNK
     Dates: start: 20090121
  5. HYDROXYZINE HCL [Concomitant]
     Dosage: 25 MG, UNK
     Dates: start: 20090225
  6. PREDNISONE [Concomitant]
     Dosage: 20 MG, UNK
     Dates: start: 20090225
  7. YAZ [Suspect]
     Indication: CONTRACEPTION
     Dosage: UNK
     Route: 048
     Dates: start: 20090101, end: 20090301
  8. YAZ [Suspect]
  9. YAZ [Suspect]
     Indication: MENSTRUATION IRREGULAR

REACTIONS (4)
  - MENTAL DISORDER [None]
  - PULMONARY EMBOLISM [None]
  - PAIN [None]
  - EMOTIONAL DISTRESS [None]
